FAERS Safety Report 9753826 (Version 2)
Quarter: 2015Q3

REPORT INFORMATION
  Report Type: Spontaneous
  Country: US (occurrence: US)
  Receive Date: 20131213
  Receipt Date: 20150805
  Transmission Date: 20151125
  Serious: No
  Sender: FDA-Public Use
  Company Number: US-GILEAD-2010-0027576

PATIENT
  Age: 65 Year
  Sex: Female
  Weight: 98.88 kg

DRUGS (10)
  1. LASIX [Concomitant]
     Active Substance: FUROSEMIDE
  2. KLONOPIN [Concomitant]
     Active Substance: CLONAZEPAM
  3. OXYCONTIN [Concomitant]
     Active Substance: OXYCODONE HYDROCHLORIDE
  4. PROZAC [Concomitant]
     Active Substance: FLUOXETINE HYDROCHLORIDE
  5. TENORMIN [Concomitant]
     Active Substance: ATENOLOL
  6. ZETIA [Concomitant]
     Active Substance: EZETIMIBE
  7. COUMADIN [Concomitant]
     Active Substance: WARFARIN SODIUM
  8. MAXALT [Concomitant]
     Active Substance: RIZATRIPTAN BENZOATE
  9. LETAIRIS [Suspect]
     Active Substance: AMBRISENTAN
     Indication: PULMONARY ARTERIAL HYPERTENSION
     Route: 048
     Dates: start: 20071107
  10. CYPROHEPTADINE. [Concomitant]
     Active Substance: CYPROHEPTADINE

REACTIONS (1)
  - Fatigue [Unknown]
